FAERS Safety Report 9682016 (Version 10)
Quarter: 2020Q1

REPORT INFORMATION
  Report Type: Spontaneous
  Country: FR (occurrence: FR)
  Receive Date: 20131111
  Receipt Date: 20200311
  Transmission Date: 20200409
  Serious: Yes (Hospitalization, Other)
  Sender: FDA-Public Use
  Company Number: FR-PFIZER INC-2013315724

PATIENT
  Age: 92 Year
  Sex: Female
  Weight: 55 kg

DRUGS (15)
  1. EUPANTOL [Suspect]
     Active Substance: PANTOPRAZOLE SODIUM
     Dosage: 20 MG, 1X/DAY
     Route: 048
     Dates: end: 20131023
  2. LASILIX [Suspect]
     Active Substance: FUROSEMIDE
     Dosage: 40 MG, DAILY
     Route: 048
  3. TANGANIL [Suspect]
     Active Substance: ACETYLLEUCINE
     Dosage: 500 MG, 3X/DAY
     Route: 048
  4. VOLTARENE (DICLOFENAC SODIUM) [Suspect]
     Active Substance: DICLOFENAC SODIUM
     Dosage: 1 DF (APPLICATION) 3X/DAILY
     Route: 061
  5. PHYSIOTENS [Suspect]
     Active Substance: MOXONIDINE
     Dosage: 0.2 MG, DAILY
     Route: 048
  6. BETASERC [BETAHISTINE] [Suspect]
     Active Substance: BETAHISTINE
     Dosage: 1 DF, BID
     Route: 048
  7. PRADAXA [Suspect]
     Active Substance: DABIGATRAN ETEXILATE MESYLATE
     Indication: ATRIAL FIBRILLATION
     Dosage: 75 MG, 2X/DAY
     Route: 048
     Dates: end: 20131024
  8. COVERAM [Suspect]
     Active Substance: AMLODIPINE\PERINDOPRIL
     Dosage: 5 MG, 1X/DAY
     Route: 048
     Dates: end: 20131023
  9. PRADAXA [Suspect]
     Active Substance: DABIGATRAN ETEXILATE MESYLATE
     Indication: COMPLICATION ASSOCIATED WITH DEVICE
  10. XALATAN [Suspect]
     Active Substance: LATANOPROST
     Dosage: 1 GTT IN EACH EYE, DAILY
     Route: 047
  11. BETASERC [Suspect]
     Active Substance: BETAHISTINE
     Dosage: 25 MG, 2X/DAY
     Route: 048
  12. OROCAL VITAMIN D [Suspect]
     Active Substance: CALCIUM CARBONATE\VITAMIN D
     Dosage: 1 DF, 1X/DAY
     Route: 048
  13. VOLTAREN EMULGEL [Suspect]
     Active Substance: DICLOFENAC DIETHYLAMINE
     Dosage: 3 APPLICATIONS DAILY
     Route: 003
  14. DOLIPRANE [Suspect]
     Active Substance: ACETAMINOPHEN
     Dosage: 500 MG, DAILY
     Route: 048
  15. CALCIPARINE [Suspect]
     Active Substance: HEPARIN CALCIUM
     Dosage: UNK
     Route: 065

REACTIONS (4)
  - Gingival bleeding [Recovered/Resolved]
  - Anaemia [Not Recovered/Not Resolved]
  - Faeces discoloured [Recovered/Resolved]
  - Renal failure [Recovered/Resolved]

NARRATIVE: CASE EVENT DATE: 201310
